FAERS Safety Report 16094341 (Version 1)
Quarter: 2019Q1

REPORT INFORMATION
  Report Type: Spontaneous
  Country: US (occurrence: US)
  Receive Date: 20190320
  Receipt Date: 20190320
  Transmission Date: 20190418
  Serious: No
  Sender: FDA-Public Use
  Company Number: US-PFIZER INC-2019021660

PATIENT
  Age: 39 Year
  Sex: Male
  Weight: 96 kg

DRUGS (3)
  1. IBRANCE [Suspect]
     Active Substance: PALBOCICLIB
     Indication: BONE CANCER METASTATIC
     Dosage: 125 MG, 1X/DAY(125 MG ONCE A DAY)
     Route: 048
  2. IBRANCE [Suspect]
     Active Substance: PALBOCICLIB
     Indication: PATELLOFEMORAL PAIN SYNDROME
     Dosage: 125 MG, CYCLIC (1 CAPSULE BY MOUTH DAILY FOR 3 WEEKS, THEN 1 WEEK OFF)
     Route: 048
     Dates: start: 201902
  3. TEMODAR [Concomitant]
     Active Substance: TEMOZOLOMIDE
     Dosage: UNK

REACTIONS (3)
  - White blood cell count decreased [Unknown]
  - Product use in unapproved indication [Unknown]
  - Product use issue [Unknown]
